FAERS Safety Report 4627592-1 (Version None)
Quarter: 2005Q2

REPORT INFORMATION
  Report Type: 
  Country: None (occurrence: None)
  Receive Date: 20050405
  Receipt Date: 20050321
  Transmission Date: 20051028
  Serious: Yes (Other)
  Sender: FDA-Public Use
  Company Number: 2005049798

PATIENT
  Age: 50 Year
  Sex: Female
  Weight: 72.5755 kg

DRUGS (3)
  1. BENADRYL [Suspect]
     Dosage: ORAL
     Route: 048
  2. LORATADINE [Suspect]
     Indication: MULTIPLE ALLERGIES
     Dosage: 1 (10 MG TAB) QD, ORAL
     Route: 048
     Dates: start: 20050301, end: 20050319
  3. PHENOBARBITAL TAB [Concomitant]

REACTIONS (2)
  - CONDITION AGGRAVATED [None]
  - CONVULSION [None]
